FAERS Safety Report 7178317-X (Version None)
Quarter: 2010Q4

REPORT INFORMATION
  Report Type: 
  Country: None (occurrence: None)
  Receive Date: 20101220
  Receipt Date: 20101208
  Transmission Date: 20110411
  Serious: Yes (Hospitalization)
  Sender: FDA-Public Use
  Company Number: JP-AMGEN-JPNCT2010009881

PATIENT

DRUGS (21)
  1. PANITUMUMAB [Suspect]
     Indication: COLORECTAL CANCER
     Dosage: 6 MG/KG, Q2WK
     Route: 041
     Dates: start: 20100909
  2. OXALIPLATIN [Suspect]
     Indication: COLORECTAL CANCER
     Route: 041
     Dates: start: 20100909
  3. OXALIPLATIN [Suspect]
     Route: 041
  4. FLUOROURACIL [Suspect]
     Indication: COLORECTAL CANCER
     Route: 040
     Dates: start: 20100909
  5. FLUOROURACIL [Suspect]
     Route: 041
     Dates: start: 20100909
  6. FLUOROURACIL [Suspect]
     Route: 040
  7. FLUOROURACIL [Suspect]
     Route: 041
  8. CALCIUM LEVOFOLINATE [Suspect]
     Indication: COLORECTAL CANCER
     Route: 041
     Dates: start: 20100909
  9. CALCIUM LEVOFOLINATE [Suspect]
     Route: 041
  10. ANTIHISTAMINES [Concomitant]
     Indication: PROPHYLAXIS
     Dosage: UNK
     Route: 065
  11. ALLEGRA [Concomitant]
     Dosage: UNK
     Route: 048
  12. CERNILTON [Concomitant]
     Dosage: UNK
     Route: 048
  13. SOLANTAL [Concomitant]
     Dosage: UNK
     Route: 048
  14. MYSLEE [Concomitant]
     Dosage: UNK
     Route: 048
  15. MAGMITT [Concomitant]
     Dosage: UNK
     Route: 048
  16. LORFENAMIN [Concomitant]
     Dosage: UNK
     Route: 048
  17. PARIET [Concomitant]
     Dosage: UNK
     Route: 048
  18. LOCOID CREAM [Concomitant]
     Dosage: UNK
     Route: 062
  19. ANTEBATE OINTMENT [Concomitant]
     Dosage: UNK
     Route: 062
  20. OXYCONTIN [Concomitant]
     Dosage: UNK
     Route: 048
  21. OXINORM [Concomitant]
     Dosage: UNK
     Route: 048

REACTIONS (3)
  - DERMATITIS ACNEIFORM [None]
  - PARONYCHIA [None]
  - THROMBOCYTOPENIA [None]
